FAERS Safety Report 23227362 (Version 1)
Quarter: 2023Q4

REPORT INFORMATION
  Report Type: Spontaneous
  Country: US (occurrence: US)
  Receive Date: 20231124
  Receipt Date: 20231124
  Transmission Date: 20240109
  Serious: Yes (Other)
  Sender: FDA-Public Use
  Company Number: US-TRIS PHARMA, INC.-23US011202

PATIENT

DRUGS (1)
  1. DYANAVEL XR [Suspect]
     Active Substance: AMPHETAMINE
     Indication: Product used for unknown indication
     Dosage: 15 MILLIGRAM
     Dates: start: 20231110, end: 20231112

REACTIONS (4)
  - Schizoaffective disorder [Recovering/Resolving]
  - Confusional state [Recovering/Resolving]
  - Anxiety [Recovering/Resolving]
  - Off label use [Unknown]

NARRATIVE: CASE EVENT DATE: 20231110
